FAERS Safety Report 24927887 (Version 1)
Quarter: 2025Q1

REPORT INFORMATION
  Report Type: Spontaneous
  Country: US (occurrence: US)
  Receive Date: 20250205
  Receipt Date: 20250205
  Transmission Date: 20250409
  Serious: Yes (Other)
  Sender: AMGEN
  Company Number: US-AMGEN-USASP2025017572

PATIENT

DRUGS (3)
  1. PREDNISONE [Suspect]
     Active Substance: PREDNISONE
     Indication: Juvenile idiopathic arthritis
     Dosage: {0.2MG/KG, QD,
     Route: 048
  2. PREDNISONE [Suspect]
     Active Substance: PREDNISONE
     Dosage: 10 MILLIGRAM, QD
     Route: 048
  3. TOFACITINIB [Concomitant]
     Active Substance: TOFACITINIB
     Indication: Juvenile idiopathic arthritis
     Dosage: 5 MILLIGRAM, BID
     Route: 065

REACTIONS (47)
  - Uveitis [Recovered/Resolved]
  - Juvenile idiopathic arthritis [Unknown]
  - Opportunistic infection [Unknown]
  - Abortion spontaneous [Unknown]
  - Suicide attempt [Unknown]
  - Infection [Unknown]
  - Leukopenia [Unknown]
  - Neutropenia [Unknown]
  - Escherichia pyelonephritis [Unknown]
  - Hypokalaemia [Unknown]
  - Upper respiratory tract infection [Unknown]
  - Nasopharyngitis [Unknown]
  - Arthralgia [Unknown]
  - Viral infection [Unknown]
  - Urinary tract infection [Unknown]
  - Sinusitis [Unknown]
  - Influenza [Unknown]
  - COVID-19 [Unknown]
  - Arthritis [Unknown]
  - Disease progression [Unknown]
  - Pharyngitis [Unknown]
  - Bronchitis [Unknown]
  - Ear infection [Unknown]
  - Herpes zoster [Recovered/Resolved]
  - Lymphocyte count increased [Unknown]
  - Abscess limb [Unknown]
  - Infectious mononucleosis [Unknown]
  - Molluscum contagiosum [Unknown]
  - Rhinovirus infection [Unknown]
  - Headache [Unknown]
  - Pyrexia [Unknown]
  - Nausea [Unknown]
  - Abdominal pain [Unknown]
  - Oropharyngeal pain [Unknown]
  - Vomiting [Unknown]
  - Cough [Unknown]
  - Blood creatine phosphokinase increased [Unknown]
  - Aspartate aminotransferase increased [Unknown]
  - Interferon gamma release assay positive [Unknown]
  - Haemoglobin decreased [Unknown]
  - Renal disorder [Unknown]
  - Lymphocyte count decreased [Unknown]
  - Alanine aminotransferase increased [Unknown]
  - Blood cholesterol increased [Unknown]
  - SARS-CoV-2 test positive [Unknown]
  - Condition aggravated [Unknown]
  - Maternal exposure during pregnancy [Unknown]
